FAERS Safety Report 13614159 (Version 2)
Quarter: 2017Q2

REPORT INFORMATION
  Report Type: Report from Study
  Country: JP (occurrence: JP)
  Receive Date: 20170606
  Receipt Date: 20170628
  Transmission Date: 20170830
  Serious: Yes (Death, Hospitalization, Disabling, Other)
  Sender: FDA-Public Use
  Company Number: JP-ROCHE-1869263

PATIENT
  Age: 35 Year
  Sex: Female
  Weight: 46 kg

DRUGS (4)
  1. CISPLATIN. [Suspect]
     Active Substance: CISPLATIN
     Indication: CERVIX CARCINOMA
     Dosage: DOSAGE IS UNCERTAIN.
     Route: 041
     Dates: start: 20160803, end: 20161209
  2. PACLITAXEL. [Suspect]
     Active Substance: PACLITAXEL
     Indication: CERVIX CARCINOMA
     Dosage: DOSAGE IS UNCERTAIN.
     Route: 041
     Dates: start: 20160803, end: 20161209
  3. BEVACIZUMAB [Suspect]
     Active Substance: BEVACIZUMAB
     Indication: CERVIX CARCINOMA
     Dosage: COMPLETED TREATMENT CYCLE NUMBER: 5
     Route: 041
     Dates: start: 20160914, end: 20161209
  4. LOXOPROFEN [Concomitant]
     Active Substance: LOXOPROFEN
     Dosage: DOSAGE IS UNCERTAIN.
     Route: 065
     Dates: start: 20160226

REACTIONS (10)
  - Gastrointestinal perforation [Recovered/Resolved with Sequelae]
  - Cervix carcinoma [Fatal]
  - Pelvic abscess [Unknown]
  - Dysuria [Not Recovered/Not Resolved]
  - Urinary tract infection [Unknown]
  - Metastases to peritoneum [Unknown]
  - Hypercalcaemia [Unknown]
  - Intestinal obstruction [Unknown]
  - Urogenital fistula [Not Recovered/Not Resolved]
  - Renal impairment [Unknown]

NARRATIVE: CASE EVENT DATE: 20161211
